FAERS Safety Report 6300880-9 (Version None)
Quarter: 2009Q3

REPORT INFORMATION
  Report Type: 
  Country: None (occurrence: None)
  Receive Date: 20090807
  Receipt Date: 20090730
  Transmission Date: 20100115
  Serious: Yes (Other)
  Sender: FDA-Public Use
  Company Number: US-BAYER-200928599NA

PATIENT
  Age: 50 Year
  Sex: Female
  Weight: 52 kg

DRUGS (1)
  1. MAGNEVIST [Suspect]
     Indication: NUCLEAR MAGNETIC RESONANCE IMAGING
     Dosage: HAND INJECTED INTO RIGHT ANTECUBITAL
     Route: 042
     Dates: start: 20090612, end: 20090612

REACTIONS (9)
  - BURNING SENSATION [None]
  - ERYTHEMA [None]
  - GALLBLADDER DISORDER [None]
  - KIDNEY INFECTION [None]
  - NAUSEA [None]
  - PYREXIA [None]
  - RENAL PAIN [None]
  - SWELLING [None]
  - VOMITING [None]
